FAERS Safety Report 12105775 (Version 1)
Quarter: 2016Q1

REPORT INFORMATION
  Report Type: Spontaneous
  Country: US (occurrence: US)
  Receive Date: 20160223
  Receipt Date: 20160223
  Transmission Date: 20160526
  Serious: No
  Sender: FDA-Public Use
  Company Number: US-PFIZER INC-2016057222

PATIENT
  Age: 47 Year
  Sex: Male
  Weight: 104.33 kg

DRUGS (2)
  1. VIAGRA [Suspect]
     Active Substance: SILDENAFIL CITRATE
     Dosage: 10 MG, PILL, ONCE A DAY
     Route: 048
     Dates: start: 201510
  2. VIAGRA [Suspect]
     Active Substance: SILDENAFIL CITRATE
     Dosage: TAKING TWICE A DAY
     Dates: start: 20151206

REACTIONS (3)
  - Intentional product use issue [Unknown]
  - Erection increased [Unknown]
  - Ejaculation disorder [Unknown]

NARRATIVE: CASE EVENT DATE: 20151204
